FAERS Safety Report 15323832 (Version 10)
Quarter: 2019Q1

REPORT INFORMATION
  Report Type: Spontaneous
  Country: CA (occurrence: CA)
  Receive Date: 20180828
  Receipt Date: 20190328
  Transmission Date: 20190417
  Serious: Yes (Hospitalization, Other)
  Sender: FDA-Public Use
  Company Number: CA-CELLTRION INC.-2018CA020775

PATIENT

DRUGS (13)
  1. INFLECTRA [Suspect]
     Active Substance: INFLIXIMAB-DYYB
     Dosage: 600 MG (10MG/KG), 0, 2, 6 WEEKS, THEN EVERY 6 WEEKS (RE-INDUCTION)
     Route: 042
     Dates: start: 20190130
  2. PREDNISONE. [Concomitant]
     Active Substance: PREDNISONE
     Indication: COLITIS ULCERATIVE
     Dosage: 40 MG, DAILY
     Route: 048
     Dates: start: 20180818, end: 20180825
  3. INFLECTRA [Suspect]
     Active Substance: INFLIXIMAB-DYYB
     Dosage: 400 MG, 0, 2, 6 WEEKS, THEN EVERY 8 WEEKS
     Route: 042
     Dates: start: 20180607
  4. INFLECTRA [Suspect]
     Active Substance: INFLIXIMAB-DYYB
     Dosage: 600 MG (10MG/KG), 0, 2, 6 WEEKS, THEN EVERY 6 WEEKS (RE-INDUCTION)
     Route: 042
     Dates: start: 20180919
  5. INFLECTRA [Suspect]
     Active Substance: INFLIXIMAB-DYYB
     Dosage: 600 MG (10MG/KG), 0, 2, 6 WEEKS, THEN EVERY 6 WEEKS (RE-INDUCTION)
     Route: 042
     Dates: start: 20190313
  6. 5-ASA [Concomitant]
     Active Substance: MESALAMINE
     Dosage: UNK
  7. INFLECTRA [Suspect]
     Active Substance: INFLIXIMAB-DYYB
     Indication: COLITIS ULCERATIVE
     Dosage: 400 MG, 0, 2, 6 WEEKS, THEN EVERY 8 WEEKS
     Route: 042
     Dates: start: 20180525
  8. INFLECTRA [Suspect]
     Active Substance: INFLIXIMAB-DYYB
     Dosage: 400 MG, 0, 2, 6 WEEKS, THEN EVERY 8 WEEKS
     Route: 042
     Dates: start: 20180703, end: 20180703
  9. INFLECTRA [Suspect]
     Active Substance: INFLIXIMAB-DYYB
     Dosage: 600 MG (10MG/KG), 0, 2, 6 WEEKS, THEN EVERY 6 WEEKS (RE-INDUCTION)
     Route: 042
     Dates: start: 20180831
  10. INFLECTRA [Suspect]
     Active Substance: INFLIXIMAB-DYYB
     Dosage: 600 MG (10MG/KG), 0, 2, 6 WEEKS, THEN EVERY 6 WEEKS (RE-INDUCTION)
     Route: 042
     Dates: start: 20181022
  11. INFLECTRA [Suspect]
     Active Substance: INFLIXIMAB-DYYB
     Dosage: 600 MG (10MG/KG), 0, 2, 6 WEEKS, THEN EVERY 6 WEEKS (RE-INDUCTION)
     Route: 042
     Dates: start: 20181022
  12. INFLECTRA [Suspect]
     Active Substance: INFLIXIMAB-DYYB
     Dosage: 600 MG (10MG/KG), 0, 2, 6 WEEKS, THEN EVERY 6 WEEKS (RE-INDUCTION)
     Route: 042
     Dates: start: 20181219
  13. PREDNISONE. [Concomitant]
     Active Substance: PREDNISONE
     Dosage: 40 MG, DAILY (TAPERING COURSE FOR 8 WEEKS)
     Route: 048

REACTIONS (18)
  - Condition aggravated [Not Recovered/Not Resolved]
  - Feeling hot [Recovered/Resolved]
  - Nausea [Unknown]
  - Chest discomfort [Recovered/Resolved]
  - Hyperhidrosis [Recovered/Resolved]
  - Therapeutic response decreased [Unknown]
  - Back pain [Unknown]
  - C-reactive protein increased [Unknown]
  - Headache [Recovered/Resolved]
  - Abdominal pain upper [Unknown]
  - Panic attack [Unknown]
  - Influenza [Recovered/Resolved]
  - Dyspnoea [Recovered/Resolved]
  - Malaise [Recovering/Resolving]
  - Pruritus [Recovered/Resolved]
  - Flushing [Recovered/Resolved]
  - Abdominal pain [Recovered/Resolved]
  - Off label use [Unknown]

NARRATIVE: CASE EVENT DATE: 201805
